FAERS Safety Report 6195400-6 (Version None)
Quarter: 2009Q2

REPORT INFORMATION
  Report Type: 
  Country: None (occurrence: None)
  Receive Date: 20090515
  Receipt Date: 20090429
  Transmission Date: 20091009
  Serious: Yes (Death)
  Sender: FDA-Public Use
  Company Number: 090505-0000686

PATIENT
  Age: 15 Year
  Sex: Female

DRUGS (1)
  1. NEMBUTAL [Suspect]
     Indication: INTRACRANIAL PRESSURE INCREASED
     Dosage: IV
     Route: 042

REACTIONS (4)
  - BRAIN DEATH [None]
  - CARDIO-RESPIRATORY ARREST [None]
  - DRUG LEVEL ABOVE THERAPEUTIC [None]
  - DRUG TOXICITY [None]
